FAERS Safety Report 20090993 (Version 2)
Quarter: 2021Q4

REPORT INFORMATION
  Report Type: Spontaneous
  Country: NG (occurrence: NG)
  Receive Date: 20211119
  Receipt Date: 20211201
  Transmission Date: 20220303
  Serious: Yes (Hospitalization, Other)
  Sender: FDA-Public Use
  Company Number: NG-MLMSERVICE-20211101-3197749-1

PATIENT
  Age: 19 Year
  Sex: Male

DRUGS (14)
  1. HYDROCORTISONE SODIUM SUCCINATE [Suspect]
     Active Substance: HYDROCORTISONE SODIUM SUCCINATE
     Indication: Prophylaxis
     Dosage: 20 MG; IT DAY 8, 15, 22, 29
     Route: 037
     Dates: start: 2020
  2. METHOTREXATE SODIUM [Suspect]
     Active Substance: METHOTREXATE SODIUM
     Indication: Prophylaxis
     Dosage: 12 MG; IT DAY 8, 15, 22, 29
     Route: 037
     Dates: start: 2020
  3. ASPARAGINASE [Suspect]
     Active Substance: ASPARAGINASE
     Indication: Philadelphia positive acute lymphocytic leukaemia
     Dosage: L-ASPARAGINASE 6000 U/M2 SC DAY 8, 10, 12, 14, 16, 18, 20, 22, 24, 26
     Route: 058
     Dates: start: 2020
  4. IMATINIB MESYLATE [Suspect]
     Active Substance: IMATINIB MESYLATE
     Indication: Philadelphia positive acute lymphocytic leukaemia
     Dosage: 600 MG
     Dates: start: 2020
  5. VINCRISTINE [Suspect]
     Active Substance: VINCRISTINE
     Indication: Philadelphia positive acute lymphocytic leukaemia
     Dosage: 1.4 MG/M2 IV DAY 8, 15, 22, 29
     Route: 042
     Dates: start: 2020
  6. PREDNISOLONE [Suspect]
     Active Substance: PREDNISOLONE
     Indication: Philadelphia positive acute lymphocytic leukaemia
     Dosage: 40 G/M2 PO DAY 8-28
     Route: 048
     Dates: start: 2020
  7. PREDNISOLONE [Suspect]
     Active Substance: PREDNISOLONE
     Dosage: PRE-INDUCTION PREDNISOLONE-60 MG/M2 PO DAY 1-7
     Route: 048
     Dates: start: 2020
  8. DAUNORUBICIN [Suspect]
     Active Substance: DAUNORUBICIN
     Indication: Philadelphia positive acute lymphocytic leukaemia
     Dosage: 20 MG/M2 IV DAY 8, 15, 29
     Route: 042
     Dates: start: 2020
  9. CYTARABINE [Suspect]
     Active Substance: CYTARABINE
     Indication: Prophylaxis
     Dosage: 30 MG; IT DAY 8, 15, 22, 29
     Route: 037
     Dates: start: 2020
  10. VITAMIN C [Concomitant]
     Active Substance: ASCORBIC ACID
     Dosage: UNK UNK, 1X/DAY
  11. PROGUANIL [Concomitant]
     Active Substance: PROGUANIL
     Dosage: UNK UNK, 1X/DAY
  12. ARTESUNATE [Concomitant]
     Active Substance: ARTESUNATE
     Indication: Plasmodium falciparum infection
     Dosage: UNK
     Dates: start: 202005
  13. VITAMIN B COMPLEX [BIOTIN;CYANOCOBALAMIN;FOLIC ACID;NICOTINIC ACID;PAN [Concomitant]
     Dosage: UNK UNK, 1X/DAY
  14. FOLIC ACID [Concomitant]
     Active Substance: FOLIC ACID
     Dosage: UNK UNK, 1X/DAY

REACTIONS (5)
  - Febrile neutropenia [Unknown]
  - Sepsis [Unknown]
  - Tinea versicolour [Unknown]
  - Meningitis aseptic [Unknown]
  - Off label use [Unknown]

NARRATIVE: CASE EVENT DATE: 20200101
